FAERS Safety Report 21534746 (Version 1)
Quarter: 2022Q4

REPORT INFORMATION
  Report Type: Spontaneous
  Country: US (occurrence: US)
  Receive Date: 20221101
  Receipt Date: 20221101
  Transmission Date: 20230113
  Serious: No
  Sender: FDA-Public Use
  Company Number: US-MIGRATION_PFIZER-2022BHV001790

PATIENT
  Age: 48 Year
  Sex: Female

DRUGS (1)
  1. NURTEC ODT [Suspect]
     Active Substance: RIMEGEPANT SULFATE
     Indication: Product used for unknown indication
     Route: 065

REACTIONS (8)
  - Pruritus [Unknown]
  - Gingival swelling [Unknown]
  - Swelling face [Unknown]
  - Ear swelling [Unknown]
  - Swelling [Unknown]
  - Eye swelling [Unknown]
  - Eye pain [Unknown]
  - Hypersensitivity [Unknown]
